FAERS Safety Report 5018734-7 (Version None)
Quarter: 2006Q2

REPORT INFORMATION
  Report Type: 
  Country: None (occurrence: None)
  Receive Date: 20060606
  Receipt Date: 20060529
  Transmission Date: 20061013
  Serious: Yes (Hospitalization)
  Sender: FDA-Public Use
  Company Number: FR-JNJFOC-20050802990

PATIENT
  Age: 51 Year
  Sex: Female
  Weight: 64 kg

DRUGS (9)
  1. REMICADE [Suspect]
     Route: 042
  2. REMICADE [Suspect]
     Dosage: 17TH INFUSION
     Route: 042
  3. REMICADE [Suspect]
     Dosage: 11TH INFUSION.
     Route: 042
  4. REMICADE [Suspect]
     Dosage: 10TH INFUSION.
     Route: 042
  5. REMICADE [Suspect]
     Indication: PSORIATIC ARTHROPATHY
     Dosage: 1ST INFUSION.
     Route: 042
  6. ALTIM [Suspect]
     Indication: PSORIATIC ARTHROPATHY
     Dosage: 2 DF
     Route: 065
  7. CORTANCYL [Suspect]
     Indication: PSORIATIC ARTHROPATHY
     Route: 048
  8. CELEBREX [Suspect]
     Indication: PSORIATIC ARTHROPATHY
     Route: 042
  9. NOVATREX [Suspect]
     Indication: PSORIATIC ARTHROPATHY
     Dosage: 6 TABLETS
     Route: 048

REACTIONS (4)
  - DERMATITIS [None]
  - DRUG INEFFECTIVE [None]
  - DRUG INTERACTION [None]
  - IMMUNE SYSTEM DISORDER [None]
